FAERS Safety Report 6260590-3 (Version None)
Quarter: 2009Q3

REPORT INFORMATION
  Report Type: 
  Country: None (occurrence: None)
  Receive Date: 20090708
  Receipt Date: 20090612
  Transmission Date: 20100115
  Serious: Yes (Other)
  Sender: FDA-Public Use
  Company Number: BR-AVENTIS-200913977GDDC

PATIENT
  Age: 57 Year
  Sex: Female
  Weight: 59 kg

DRUGS (5)
  1. LANTUS [Suspect]
     Route: 058
     Dates: start: 20060101
  2. OPTIPEN (INSULIN PUMP) [Suspect]
     Dates: start: 20060101, end: 20090412
  3. HUMALOG [Concomitant]
     Indication: BLOOD GLUCOSE INCREASED
     Dosage: FREQUENCY: BEFORE MEALS
     Dates: start: 20060101
  4. TRILEPTAL [Concomitant]
     Dosage: DOSE QUANTITY: 1
     Route: 048
     Dates: start: 20060101
  5. EPOGEN [Concomitant]
     Dosage: DOSE QUANTITY: 3
     Route: 058

REACTIONS (4)
  - BLOOD GLUCOSE INCREASED [None]
  - CONDITION AGGRAVATED [None]
  - PRODUCT QUALITY ISSUE [None]
  - RETINOPATHY [None]
